FAERS Safety Report 19957148 (Version 2)
Quarter: 2021Q4

REPORT INFORMATION
  Report Type: Spontaneous
  Country: AU (occurrence: AU)
  Receive Date: 20211014
  Receipt Date: 20211026
  Transmission Date: 20220303
  Serious: Yes (Hospitalization, Other)
  Sender: FDA-Public Use
  Company Number: AU-VERTEX PHARMACEUTICALS-2021-016065

PATIENT
  Age: 6 Year
  Sex: Female

DRUGS (10)
  1. ORKAMBI [Suspect]
     Active Substance: IVACAFTOR\LUMACAFTOR
     Indication: Cystic fibrosis
     Dosage: 2 TABLETS, BID
     Route: 048
     Dates: start: 202001
  2. IVIGLOB EX [Concomitant]
     Active Substance: HUMAN IMMUNOGLOBULIN G
     Dosage: 10G MONTHLY
     Route: 042
  3. SODIUM CHLORIDE [Concomitant]
     Active Substance: SODIUM CHLORIDE
     Dosage: 6% NEBULISED BD WITH PHYSIOTHERAPY
  4. VITABDECK [Concomitant]
  5. PULMOZYME [Concomitant]
     Active Substance: DORNASE ALFA
     Dosage: 2.5 MG NOCTE
  6. TOBRAMYCIN [Concomitant]
     Active Substance: TOBRAMYCIN
     Dosage: 300MG NEBS, MONTH ON MONTH OFF
  7. URSODIOL [Concomitant]
     Active Substance: URSODIOL
     Dosage: 125 MG, BID
  8. SERETIDE [Concomitant]
     Active Substance: FLUTICASONE PROPIONATE\SALMETEROL XINAFOATE
     Dosage: 125/25, 2 INHALATIONS BD
  9. SALT [Concomitant]
     Active Substance: SODIUM CHLORIDE
     Dosage: 600MG TABS 6 PER DAY
  10. OMEPRAZOLE [Concomitant]
     Active Substance: OMEPRAZOLE
     Dosage: 10 MG, QD

REACTIONS (4)
  - Femur fracture [Unknown]
  - Fall [Unknown]
  - Bone density decreased [Not Recovered/Not Resolved]
  - Pathological fracture [Unknown]

NARRATIVE: CASE EVENT DATE: 20200601
